FAERS Safety Report 24170741 (Version 1)
Quarter: 2024Q3

REPORT INFORMATION
  Report Type: Spontaneous
  Country: US (occurrence: None)
  Receive Date: 20240802
  Receipt Date: 20240802
  Transmission Date: 20241017
  Serious: Yes (Life-Threatening, Hospitalization, Disabling)
  Sender: Public
  Company Number: None

PATIENT
  Age: 65 Year
  Sex: Male
  Weight: 76.5 kg

DRUGS (4)
  1. AVASTIN [Suspect]
     Active Substance: BEVACIZUMAB
     Indication: Hepatic cancer
     Dosage: EVERY 3 WEEKS INTRAVENOUS?
     Route: 042
     Dates: start: 20210901, end: 20211001
  2. TECENTRIQ [Suspect]
     Active Substance: ATEZOLIZUMAB
  3. Hpb [Concomitant]
  4. UNSPECIFIED INGREDIENT [Concomitant]
     Active Substance: UNSPECIFIED INGREDIENT

REACTIONS (7)
  - Asthenia [None]
  - Fall [None]
  - Mobility decreased [None]
  - Paralysis [None]
  - Facial paralysis [None]
  - Speech disorder [None]
  - Near death experience [None]

NARRATIVE: CASE EVENT DATE: 20211020
